FAERS Safety Report 18546609 (Version 1)
Quarter: 2020Q4

REPORT INFORMATION
  Report Type: Spontaneous
  Country: GB (occurrence: GB)
  Receive Date: 20201125
  Receipt Date: 20201125
  Transmission Date: 20210114
  Serious: Yes (Other)
  Sender: FDA-Public Use
  Company Number: GB-TEVA-2020-GB-1851555

PATIENT
  Age: 33 Year
  Sex: Female
  Weight: 112.48 kg

DRUGS (7)
  1. OLOPATADINE. [Concomitant]
     Active Substance: OLOPATADINE
  2. FLIXONASE AQUEOUS [Concomitant]
  3. PROGESTOGEN [Concomitant]
  4. SALBUTAMOL [Concomitant]
     Active Substance: ALBUTEROL
  5. FEXOFENADINE HYDROCHLORIDE. [Suspect]
     Active Substance: FEXOFENADINE HYDROCHLORIDE
     Dosage: 180MILLIGRAM
     Route: 048
     Dates: start: 20200917, end: 20201021
  6. AZELASTINE HYDROCHLORIDE. [Concomitant]
     Active Substance: AZELASTINE HYDROCHLORIDE
  7. FEXOFENADINE HYDROCHLORIDE. [Suspect]
     Active Substance: FEXOFENADINE HYDROCHLORIDE
     Indication: MULTIPLE ALLERGIES
     Dosage: 120MILLIGRAM
     Route: 048
     Dates: start: 20201022, end: 20201024

REACTIONS (1)
  - Dysgeusia [Recovering/Resolving]

NARRATIVE: CASE EVENT DATE: 20200921
